FAERS Safety Report 16742528 (Version 11)
Quarter: 2020Q3

REPORT INFORMATION
  Report Type: Spontaneous
  Country: US (occurrence: US)
  Receive Date: 20190826
  Receipt Date: 20200713
  Transmission Date: 20201102
  Serious: Yes (Hospitalization, Congenital Anomaly, Other)
  Sender: FDA-Public Use
  Company Number: PHEH2019US035412

PATIENT
  Sex: Female

DRUGS (3)
  1. ONDANSETRON [Suspect]
     Active Substance: ONDANSETRON
     Indication: FOETAL EXPOSURE DURING PREGNANCY
     Dosage: MOTHER DOSE: 4 MG, Q6H
     Route: 064
  2. ZOFRAN [Suspect]
     Active Substance: ONDANSETRON HYDROCHLORIDE
     Indication: FOETAL EXPOSURE DURING PREGNANCY
     Route: 064
  3. ZOFRAN ODT [Suspect]
     Active Substance: ONDANSETRON HYDROCHLORIDE
     Indication: FOETAL EXPOSURE DURING PREGNANCY
     Dosage: MOTHER DOSE: 4 MG, Q6H
     Route: 064

REACTIONS (58)
  - Pneumonia [Unknown]
  - Pulmonary valve incompetence [Unknown]
  - Electrocardiogram ST segment elevation [Unknown]
  - Foetal exposure during pregnancy [Unknown]
  - Nasopharyngitis [Unknown]
  - Vomiting [Unknown]
  - Motor developmental delay [Unknown]
  - Tremor [Unknown]
  - Right ventricular dilatation [Unknown]
  - Nasal congestion [Unknown]
  - Hypoacusis [Unknown]
  - Pericardial effusion [Unknown]
  - Developmental delay [Unknown]
  - Dyspnoea [Unknown]
  - Musculoskeletal stiffness [Unknown]
  - Otitis media acute [Unknown]
  - Streptococcus test positive [Unknown]
  - Metapneumovirus infection [Unknown]
  - Pulmonary hypertension [Recovered/Resolved]
  - Speech disorder [Unknown]
  - Language disorder [Unknown]
  - Dysarthria [Unknown]
  - Speech sound disorder [Unknown]
  - Foaming at mouth [Unknown]
  - Irritability [Unknown]
  - Vascular resistance pulmonary increased [Unknown]
  - Poor feeding infant [Unknown]
  - Right atrial enlargement [Unknown]
  - Right ventricular hypertrophy [Unknown]
  - Cough [Unknown]
  - Ear pain [Unknown]
  - Seasonal allergy [Unknown]
  - Ventricular septal defect [Unknown]
  - Atrial septal defect [Unknown]
  - Pulmonary artery stenosis [Unknown]
  - QRS axis abnormal [Unknown]
  - Ear infection [Unknown]
  - Viral upper respiratory tract infection [Unknown]
  - Tricuspid valve incompetence [Unknown]
  - Bronchiolitis [Unknown]
  - Cardiac murmur [Unknown]
  - Cardiomegaly [Unknown]
  - Breath holding [Unknown]
  - Oxygen saturation decreased [Unknown]
  - Rhinitis [Unknown]
  - Left-to-right cardiac shunt [Unknown]
  - Right-to-left cardiac shunt [Unknown]
  - Injury [Unknown]
  - Asthma [Unknown]
  - Tachypnoea [Unknown]
  - Rhinorrhoea [Unknown]
  - Pharyngitis [Unknown]
  - Pharyngitis streptococcal [Unknown]
  - Heart disease congenital [Unknown]
  - Dysmorphism [Unknown]
  - Pyrexia [Unknown]
  - Right atrial dilatation [Unknown]
  - Decreased appetite [Unknown]
